FAERS Safety Report 21184493 (Version 1)
Quarter: 2022Q3

REPORT INFORMATION
  Report Type: Spontaneous
  Country: US (occurrence: US)
  Receive Date: 20220808
  Receipt Date: 20220808
  Transmission Date: 20221027
  Serious: No
  Sender: FDA-Public Use
  Company Number: US-BAYER-2022A106688

PATIENT
  Age: 57 Year
  Sex: Male

DRUGS (1)
  1. CLARITIN-D 12 HOUR [Suspect]
     Active Substance: LORATADINE\PSEUDOEPHEDRINE SULFATE
     Indication: Sinus congestion
     Dosage: UNK
     Route: 048
     Dates: start: 20220705, end: 20220707

REACTIONS (3)
  - Adverse drug reaction [Recovered/Resolved]
  - Heart rate increased [Recovered/Resolved]
  - Dizziness [Recovered/Resolved]

NARRATIVE: CASE EVENT DATE: 20220705
